FAERS Safety Report 5732595-X (Version None)
Quarter: 2008Q2

REPORT INFORMATION
  Report Type: 
  Country: None (occurrence: None)
  Receive Date: 20080507
  Receipt Date: 20080429
  Transmission Date: 20081010
  Serious: Yes (Death, Life-Threatening)
  Sender: FDA-Public Use
  Company Number: 2006S1000029

PATIENT
  Age: 63 Year
  Sex: Female
  Weight: 55.1 kg

DRUGS (31)
  1. INOMAX [Suspect]
     Indication: VENTRICULAR ASSIST DEVICE INSERTION
     Dosage: 20 PPM;CONT;INH
     Route: 055
     Dates: start: 20060201, end: 20060204
  2. AMIODARONE [Concomitant]
  3. EPINEPHRINE [Concomitant]
  4. NITROGLYCERIN [Concomitant]
  5. SODIUM NITROPRUSSIDE [Concomitant]
  6. PROPOFOL [Concomitant]
  7. INSULIN [Concomitant]
  8. FUROSEMIDE [Concomitant]
  9. MILRINONE LACTATE [Concomitant]
  10. CASPOFUNGIN [Concomitant]
  11. CEFUROXIME [Concomitant]
  12. NYSTATIN [Concomitant]
  13. PROTONIX [Concomitant]
  14. VANCOMYCIN [Concomitant]
  15. PROTAMINE SULFATE [Concomitant]
  16. CIPROFLOXACIN HCL [Concomitant]
  17. FERROUS SULFATE TAB [Concomitant]
  18. AMIODARONE [Concomitant]
  19. PROTONIX [Concomitant]
  20. DOCUSATE [Concomitant]
  21. DOBUTAMINE HCL [Concomitant]
  22. HEPARIN [Concomitant]
  23. SODIUM NITROPRUSSIDE [Concomitant]
  24. TIOTROPIUM BROMIDE [Concomitant]
  25. VITAMIN K TAB [Concomitant]
  26. INSULIN [Concomitant]
  27. POTASSIUM CHLORIDE [Concomitant]
  28. MAGNESIUM SULFATE [Concomitant]
  29. CALCIUM [Concomitant]
  30. FENTANYL [Concomitant]
  31. VASOPRESSIN INJECTION [Concomitant]

REACTIONS (11)
  - COAGULOPATHY [None]
  - GENERAL PHYSICAL HEALTH DETERIORATION [None]
  - HAEMATOMA [None]
  - HAEMODIALYSIS [None]
  - HEPATIC FAILURE [None]
  - MULTI-ORGAN FAILURE [None]
  - POST PROCEDURAL COMPLICATION [None]
  - PULMONARY ARTERY DILATATION [None]
  - RENAL FAILURE [None]
  - RESPIRATORY FAILURE [None]
  - RIGHT VENTRICULAR FAILURE [None]
